FAERS Safety Report 7542482-2 (Version None)
Quarter: 2011Q2

REPORT INFORMATION
  Report Type: 
  Country: None (occurrence: None)
  Receive Date: 20110524
  Receipt Date: 20110315
  Transmission Date: 20111010
  Serious: No
  Sender: FDA-Public Use
  Company Number: 025786

PATIENT
  Sex: Male
  Weight: 62.5964 kg

DRUGS (8)
  1. FENTANYL [Concomitant]
  2. CIMZIA [Suspect]
     Indication: CROHN'S DISEASE
     Dosage: 400 MG 1X/MONTH SUBCUTANEOUS
     Route: 058
     Dates: start: 20090610
  3. AZATHIOPRINE [Concomitant]
  4. OXYCODONE HCL [Concomitant]
  5. VITAMINS NOS [Concomitant]
  6. LORAZEPAM [Concomitant]
  7. CARAFATE [Concomitant]
  8. ERYTHROCIN /00020901/ [Concomitant]

REACTIONS (5)
  - INFLUENZA LIKE ILLNESS [None]
  - PAIN IN EXTREMITY [None]
  - PALLOR [None]
  - PYREXIA [None]
  - CHILLS [None]
